FAERS Safety Report 7789888-4 (Version None)
Quarter: 2011Q3

REPORT INFORMATION
  Report Type: 
  Country: None (occurrence: None)
  Receive Date: 20110930
  Receipt Date: 20110310
  Transmission Date: 20111222
  Serious: Yes (Other)
  Sender: FDA-Public Use
  Company Number: US-ASTRAZENECA-2011SE13547

PATIENT
  Age: 60 Year
  Sex: Female
  Weight: 90.3 kg

DRUGS (5)
  1. ARIMIDEX [Suspect]
     Indication: BREAST CANCER IN SITU
     Route: 048
     Dates: start: 19990101, end: 20100901
  2. ZOMETA [Concomitant]
  3. XGEVA [Concomitant]
  4. FASLODEX [Suspect]
     Indication: BREAST CANCER IN SITU
     Route: 030
     Dates: start: 20110201
  5. ANASTROZOLE [Suspect]
     Indication: BREAST CANCER IN SITU
     Route: 048
     Dates: start: 20100901, end: 20110201

REACTIONS (4)
  - METASTASES TO LUNG [None]
  - INJECTION SITE PRURITUS [None]
  - METASTASES TO LIVER [None]
  - WEIGHT DECREASED [None]
